FAERS Safety Report 5305655-5 (Version None)
Quarter: 2007Q1

REPORT INFORMATION
  Report Type: 
  Country: None (occurrence: None)
  Receive Date: 20070201
  Receipt Date: 20061229
  Transmission Date: 20070707
  Serious: No
  Sender: FDA-Public Use
  Company Number: 2007PV027548

PATIENT
  Age: 52 Year
  Sex: Female
  Weight: 123.3784 kg

DRUGS (2)
  1. BYETTA [Suspect]
     Indication: DIABETES MELLITUS NON-INSULIN-DEPENDENT
     Dosage: 5 MCG BID SC
     Route: 058
     Dates: start: 20061228
  2. AMARYL [Concomitant]

REACTIONS (3)
  - EARLY SATIETY [None]
  - HYPOGLYCAEMIA [None]
  - NAUSEA [None]
